FAERS Safety Report 6538592-9 (Version None)
Quarter: 2010Q1

REPORT INFORMATION
  Report Type: 
  Country: None (occurrence: None)
  Receive Date: 20100113
  Receipt Date: 20100113
  Transmission Date: 20100710
  Serious: Yes (Disabling)
  Sender: FDA-Public Use
  Company Number: None

PATIENT
  Sex: Female
  Weight: 61.2356 kg

DRUGS (1)
  1. ZICAM COLD REMEDY [Suspect]
     Indication: NASOPHARYNGITIS
     Dosage: 1 NASAL GEL 2X DAY COLD SYMPTOMS
     Dates: start: 20060101, end: 20080101

REACTIONS (3)
  - ANOSMIA [None]
  - HYPERSENSITIVITY [None]
  - SNORING [None]
